FAERS Safety Report 7108099-9 (Version None)
Quarter: 2010Q4

REPORT INFORMATION
  Report Type: 
  Country: None (occurrence: None)
  Receive Date: 20101117
  Receipt Date: 20101108
  Transmission Date: 20110411
  Serious: Yes (Hospitalization)
  Sender: FDA-Public Use
  Company Number: DE-ASTRAZENECA-2010SE53314

PATIENT
  Age: 27 Year
  Sex: Female
  Weight: 124.5 kg

DRUGS (10)
  1. SEROQUEL XR [Suspect]
     Route: 048
     Dates: start: 20100201, end: 20100901
  2. SEROQUEL XR [Suspect]
     Route: 048
     Dates: start: 20100902, end: 20101002
  3. SEROQUEL XR [Suspect]
     Route: 048
     Dates: start: 20101003
  4. RISPERDAL [Suspect]
     Route: 048
     Dates: start: 20100201, end: 20100611
  5. RISPERDAL [Suspect]
     Dosage: 5-1 MG DAILY
     Route: 048
     Dates: start: 20100612, end: 20100901
  6. VENLAFAXINE HCL [Suspect]
     Route: 048
     Dates: start: 20090101
  7. ORFIRIL [Concomitant]
     Route: 048
     Dates: start: 20090101
  8. DELIX [Concomitant]
     Route: 048
     Dates: start: 20090101
  9. BELOC MITE [Concomitant]
     Route: 048
     Dates: start: 20090101
  10. PANTOPRAZOLE SODIUM [Concomitant]
     Route: 048
     Dates: start: 20090101

REACTIONS (2)
  - AMENORRHOEA [None]
  - GALACTORRHOEA [None]
